FAERS Safety Report 7384946-0 (Version None)
Quarter: 2011Q1

REPORT INFORMATION
  Report Type: 
  Country: None (occurrence: None)
  Receive Date: 20110330
  Receipt Date: 20110104
  Transmission Date: 20110831
  Serious: Yes (Hospitalization, Other)
  Sender: FDA-Public Use
  Company Number: PHHY2011US01949

PATIENT
  Age: 65 Year
  Sex: Female

DRUGS (10)
  1. LASIX [Concomitant]
     Dosage: 20 MG, QD
  2. LONITEN [Concomitant]
     Dosage: 5 MG, BID
  3. KEPPRA [Concomitant]
     Dosage: 500 MG, BID
  4. ACETYLSALICYLIC ACID [Concomitant]
     Dosage: 325 MG, QD
  5. LEXAPRO [Concomitant]
     Dosage: 5 MG, QD
  6. EXELON [Suspect]
     Indication: DEMENTIA
     Dosage: 3 MG, BID
  7. TENORMIN [Interacting]
     Dosage: 25 MG, BID
  8. MONOPRIL [Concomitant]
     Dosage: 20 MG, BID
  9. NORVASC [Concomitant]
     Dosage: 5 MG, QD
  10. PLAVIX [Concomitant]
     Dosage: 75 MG, QD

REACTIONS (12)
  - FALL [None]
  - SINUS BRADYCARDIA [None]
  - ORTHOSTATIC HYPOTENSION [None]
  - DRUG INEFFECTIVE [None]
  - SYNCOPE [None]
  - UNRESPONSIVE TO STIMULI [None]
  - CREATININE RENAL CLEARANCE DECREASED [None]
  - FIBRIN D DIMER INCREASED [None]
  - PRESYNCOPE [None]
  - SINUS ARREST [None]
  - DYSPNOEA [None]
  - DRUG INTERACTION [None]
